FAERS Safety Report 21217767 (Version 2)
Quarter: 2022Q3

REPORT INFORMATION
  Report Type: Spontaneous
  Country: US (occurrence: US)
  Receive Date: 20220816
  Receipt Date: 20220915
  Transmission Date: 20221027
  Serious: No
  Sender: FDA-Public Use
  Company Number: US-SA-SAC20220812000332

PATIENT
  Age: 28 Year
  Sex: Male

DRUGS (2)
  1. DUPIXENT [Suspect]
     Active Substance: DUPILUMAB
     Indication: Dermatitis atopic
     Dosage: 300 MG, QOW
     Route: 058
     Dates: start: 20220215
  2. ZYRTEC [Concomitant]
     Active Substance: CETIRIZINE HYDROCHLORIDE
     Route: 048

REACTIONS (4)
  - Testicular pain [Not Recovered/Not Resolved]
  - Ocular hyperaemia [Recovered/Resolved]
  - Pelvic floor dysfunction [Recovering/Resolving]
  - Eye pruritus [Recovered/Resolved]

NARRATIVE: CASE EVENT DATE: 20220101
